FAERS Safety Report 4645349-2 (Version None)
Quarter: 2005Q2

REPORT INFORMATION
  Report Type: 
  Country: None (occurrence: None)
  Receive Date: 20050331
  Receipt Date: 20050125
  Transmission Date: 20051028
  Serious: Yes (Hospitalization)
  Sender: FDA-Public Use
  Company Number: 04P-163-0285039-00

PATIENT
  Age: 81 Year
  Sex: Female
  Weight: 53.5244 kg

DRUGS (1)
  1. HUMIRA [Suspect]
     Dosage: 40 MG, SUBCUTANEOUS
     Route: 058
     Dates: start: 20040422

REACTIONS (6)
  - BONE SCAN ABNORMAL [None]
  - CELLULITIS [None]
  - PAIN [None]
  - PNEUMONIA [None]
  - STAPHYLOCOCCAL ABSCESS [None]
  - WEIGHT DECREASED [None]
